FAERS Safety Report 5201245-3 (Version None)
Quarter: 2007Q1

REPORT INFORMATION
  Report Type: 
  Country: None (occurrence: None)
  Receive Date: 20070108
  Receipt Date: 20061221
  Transmission Date: 20070707
  Serious: Yes (Other)
  Sender: FDA-Public Use
  Company Number: FR-BRISTOL-MYERS SQUIBB COMPANY-11651932

PATIENT
  Sex: Female

DRUGS (9)
  1. VIDEX [Suspect]
     Indication: HIV TEST POSITIVE
     Dosage: EXPOSURE BEGAN IN WEEK TWO OF GESTATION.
     Route: 064
     Dates: start: 19970529, end: 19970701
  2. ZERIT [Suspect]
     Indication: HIV TEST POSITIVE
     Dosage: EXPOSURE BEGAN IN WEEK TWO OF GESTATION.
     Route: 064
     Dates: start: 19970529, end: 19970701
  3. CRIXIVAN [Suspect]
     Indication: HIV TEST POSITIVE
     Dosage: EXPOSURE BEGAN IN WEEK TWO OF GESTATION.
     Route: 064
     Dates: start: 19970529, end: 19970701
  4. FORTOVASE [Suspect]
     Indication: HIV TEST POSITIVE
     Dosage: EXPOSURE BEGAN IN WEEK 29 OF GESTATION.
     Route: 064
     Dates: start: 19971112, end: 19980119
  5. RETROVIR [Suspect]
     Indication: HIV TEST POSITIVE
     Dosage: EXPOSURE BEGAN IN WEEK TEN OF GESTATION.
     Route: 064
     Dates: start: 19970701, end: 19980119
  6. EPIVIR [Suspect]
     Indication: HIV TEST POSITIVE
     Dosage: EXPOSURE BEGAN IN WEEK 29 OF GESTATION.
     Route: 064
     Dates: start: 19971112, end: 19980119
  7. ZIDOVUDINE [Suspect]
     Indication: HIV INFECTION
     Route: 064
     Dates: start: 19980119, end: 19980119
  8. ZIDOVUDINE [Suspect]
     Indication: PROPHYLAXIS AGAINST HIV INFECTION
     Route: 048
     Dates: start: 19980101, end: 19980301
  9. LAMIVUDINE [Suspect]
     Indication: PROPHYLAXIS AGAINST HIV INFECTION
     Route: 048
     Dates: start: 19980101, end: 19980301

REACTIONS (6)
  - ANAEMIA MACROCYTIC [None]
  - CEREBRAL DISORDER [None]
  - FOETAL GROWTH RETARDATION [None]
  - NEUTROPENIA [None]
  - PREGNANCY [None]
  - RHINITIS [None]
